FAERS Safety Report 16708968 (Version 1)
Quarter: 2019Q3

REPORT INFORMATION
  Report Type: Spontaneous
  Country: CH (occurrence: CH)
  Receive Date: 20190816
  Receipt Date: 20190816
  Transmission Date: 20191004
  Serious: Yes (Death)
  Sender: FDA-Public Use
  Company Number: CH-STRIDES ARCOLAB LIMITED-2019SP007654

PATIENT

DRUGS (2)
  1. NEVIRAPINE. [Suspect]
     Active Substance: NEVIRAPINE
     Indication: HIV INFECTION
     Dosage: 200 MG ONCE DAILY
     Route: 065
  2. NEVIRAPINE. [Suspect]
     Active Substance: NEVIRAPINE
     Dosage: 400 MG PROLONGED RELEASE TABLET DAILY AFTER 2 WEEKS (IF THERE IS NO SIGN OF ADVERSE DRUG EFFECTS)
     Route: 065

REACTIONS (1)
  - Overdose [Fatal]
